FAERS Safety Report 21285088 (Version 2)
Quarter: 2022Q3

REPORT INFORMATION
  Report Type: Report from Study
  Country: ES (occurrence: ES)
  Receive Date: 20220902
  Receipt Date: 20220919
  Transmission Date: 20221027
  Serious: Yes (Death, Hospitalization, Other)
  Sender: FDA-Public Use
  Company Number: ES-BRISTOL-MYERS SQUIBB COMPANY-2022-075749

PATIENT
  Age: 71 Year
  Sex: Male
  Weight: 74 kg

DRUGS (13)
  1. CARBOPLATIN [Suspect]
     Active Substance: CARBOPLATIN
     Indication: Non-small cell lung cancer
     Dosage: LAST DOSE OF CARBOPLATIN (540 MG) ON 24-MAY-2022
     Route: 065
     Dates: start: 20220406, end: 20220406
  2. CARBOPLATIN [Suspect]
     Active Substance: CARBOPLATIN
     Route: 065
     Dates: start: 20220524, end: 20220524
  3. PACLITAXEL [Suspect]
     Active Substance: PACLITAXEL
     Indication: Non-small cell lung cancer
     Dosage: LAST DOSE 06-APR-2022
     Route: 065
     Dates: start: 20220406, end: 20220406
  4. ETOPOSIDE [Suspect]
     Active Substance: ETOPOSIDE
     Indication: Non-small cell lung cancer
     Dosage: LAST DOSE 26-MAY-2022
     Route: 065
     Dates: start: 20220428, end: 20220526
  5. SIMVASTATIN [Concomitant]
     Active Substance: SIMVASTATIN
     Indication: Product used for unknown indication
     Dosage: EVERY 24 HOURS
     Route: 048
     Dates: start: 2022, end: 20220718
  6. MIRTAZAPINE [Concomitant]
     Active Substance: MIRTAZAPINE
     Indication: Product used for unknown indication
     Route: 048
     Dates: start: 2022, end: 20220718
  7. METFORMIN HYDROCHLORIDE [Concomitant]
     Active Substance: METFORMIN HYDROCHLORIDE
     Indication: Product used for unknown indication
     Route: 048
     Dates: start: 2022
  8. ANMOXICILINE+ CLAVULANIC ACID [Concomitant]
     Indication: Pyrexia
     Route: 048
     Dates: start: 20220701, end: 20220707
  9. ACETAMINOPHEN [Concomitant]
     Active Substance: ACETAMINOPHEN
     Indication: Prophylaxis
     Dosage: AS NEEDED
     Route: 048
     Dates: start: 20220409, end: 20220715
  10. OMEPRAZOLE [Concomitant]
     Active Substance: OMEPRAZOLE
     Indication: Prophylaxis
     Route: 048
     Dates: start: 20220704, end: 20220718
  11. PREDNISONE [Concomitant]
     Active Substance: PREDNISONE
     Indication: Radiation pneumonitis
     Route: 048
     Dates: start: 20220704, end: 20220710
  12. PREDNISONE [Concomitant]
     Active Substance: PREDNISONE
     Route: 048
     Dates: start: 20220711, end: 20220714
  13. CODEINE [Concomitant]
     Active Substance: CODEINE
     Indication: Product used for unknown indication
     Route: 048
     Dates: start: 20220711, end: 20220715

REACTIONS (1)
  - Pneumonitis [Fatal]

NARRATIVE: CASE EVENT DATE: 20220715
